FAERS Safety Report 9076930 (Version 1)
Quarter: 2013Q1

REPORT INFORMATION
  Report Type: Report from Study
  Country: US (occurrence: US)
  Receive Date: 20130129
  Receipt Date: 20130129
  Transmission Date: 20140127
  Serious: Yes (Other)
  Sender: FDA-Public Use
  Company Number: US-ABBOTT-12P-163-0926289-00

PATIENT
  Age: 61 Year
  Sex: Female
  Weight: 64.92 kg

DRUGS (1)
  1. HUMIRA 40 MG/0.8 ML PEN [Suspect]
     Indication: CROHN^S DISEASE
     Route: 058
     Dates: start: 20110426, end: 201204

REACTIONS (3)
  - Neoplasm malignant [Not Recovered/Not Resolved]
  - Hepatic cancer recurrent [Not Recovered/Not Resolved]
  - Breast cancer metastatic [Unknown]
